FAERS Safety Report 21496206 (Version 2)
Quarter: 2023Q1

REPORT INFORMATION
  Report Type: Report from Study
  Country: US (occurrence: US)
  Receive Date: 20221022
  Receipt Date: 20230313
  Transmission Date: 20230418
  Serious: No
  Sender: FDA-Public Use
  Company Number: US-ABBVIE-4143078

PATIENT
  Sex: Female

DRUGS (1)
  1. VENCLEXTA [Suspect]
     Active Substance: VENETOCLAX
     Indication: Neoplasm malignant
     Dosage: START WITH 1 TABLET DAILY FOR ONE WEEK, WILL INCREASE TO 200MG BASED ON TOLERANCE?STRENGTH 100 MI...
     Route: 048

REACTIONS (5)
  - Gastric infection [Unknown]
  - Gastroenteritis [Unknown]
  - Dyspnoea [Unknown]
  - Abdominal discomfort [Unknown]
  - Fatigue [Unknown]
